FAERS Safety Report 5826101-9 (Version None)
Quarter: 2008Q3

REPORT INFORMATION
  Report Type: 
  Country: None (occurrence: None)
  Receive Date: 20080729
  Receipt Date: 20080716
  Transmission Date: 20090109
  Serious: Yes (Hospitalization)
  Sender: FDA-Public Use
  Company Number: US-ELI_LILLY_AND_COMPANY-US200807003266

PATIENT
  Age: 21 Year
  Sex: Male

DRUGS (7)
  1. CYMBALTA [Suspect]
     Indication: DEPRESSION
     Dosage: 30 MG, UNK
     Dates: start: 20080201, end: 20080101
  2. CYMBALTA [Suspect]
     Dosage: 60 MG, UNK
     Dates: start: 20080101, end: 20080101
  3. CYMBALTA [Suspect]
     Dosage: 90 MG, UNK
     Dates: start: 20080601
  4. CYMBALTA [Suspect]
     Dosage: 60 MG, UNK
     Dates: start: 20080101, end: 20080101
  5. CYMBALTA [Suspect]
     Dosage: 30 MG, UNK
     Dates: start: 20080713, end: 20080713
  6. EFFEXOR [Concomitant]
  7. MARIJUANA [Concomitant]
     Indication: DEPRESSION
     Dates: start: 20080301

REACTIONS (3)
  - DRUG ABUSE [None]
  - NAUSEA [None]
  - PHOTOPSIA [None]
